FAERS Safety Report 16038795 (Version 15)
Quarter: 2021Q1

REPORT INFORMATION
  Report Type: Report from Study
  Country: CN (occurrence: CN)
  Receive Date: 20190305
  Receipt Date: 20210205
  Transmission Date: 20210419
  Serious: Yes (Death, Life-Threatening)
  Sender: FDA-Public Use
  Company Number: CN-AMGEN-CHNCT2019034835

PATIENT
  Age: 18 Year
  Sex: Female
  Weight: 53 kg

DRUGS (32)
  1. ESOMEPRAZOLE SODIUM. [Concomitant]
     Active Substance: ESOMEPRAZOLE SODIUM
     Dosage: 20 MILLIGRAM
     Dates: start: 20190220, end: 20190304
  2. BETAHISTINE MESILATE [Concomitant]
     Active Substance: BETAHISTINE MESILATE
     Dosage: 12 MILLIGRAM
     Route: 048
     Dates: start: 20190227, end: 20190304
  3. DEXAMETHASONE. [Concomitant]
     Active Substance: DEXAMETHASONE
     Dosage: 5?20 MILLIGRAM
     Dates: start: 20190209, end: 20190304
  4. FUROSEMIDE. [Concomitant]
     Active Substance: FUROSEMIDE
     Indication: CARDIAC FAILURE ACUTE
     Dosage: 20 TO 60 MILLIGRAM
     Route: 042
     Dates: start: 20190226, end: 20190304
  5. GLUCOSE [Concomitant]
     Active Substance: DEXTROSE
     Dosage: 100 TO 500 MILLILITER
     Route: 042
     Dates: start: 20190224, end: 20190304
  6. NYSFUNGIN [Concomitant]
     Dosage: 5000000 UNK
     Route: 050
     Dates: start: 20190301, end: 20190301
  7. ACETAMINOPHEN. [Concomitant]
     Active Substance: ACETAMINOPHEN
     Dosage: 0.65 GRAM
     Route: 048
     Dates: start: 20190221, end: 20190221
  8. SODIUM CHLORIDE. [Concomitant]
     Active Substance: SODIUM CHLORIDE
     Dosage: 100 MILLILITER
     Route: 050
     Dates: start: 20190223, end: 20190303
  9. POTASSIUM CHLORIDE. [Concomitant]
     Active Substance: POTASSIUM CHLORIDE
     Dosage: 10 TO 30 MILLILITER
     Dates: start: 20190226, end: 20190304
  10. HYDROTALCITE [Concomitant]
     Active Substance: HYDROTALCITE
     Dosage: 1000 MILLIGRAM
     Route: 048
     Dates: start: 20190219, end: 20190304
  11. ETAMSYLATE [Concomitant]
     Active Substance: ETHAMSYLATE
     Dosage: 2 GRAM
     Route: 042
     Dates: start: 20190220, end: 20190303
  12. ALPRAZOLAM. [Concomitant]
     Active Substance: ALPRAZOLAM
     Dosage: 0.4 MILLIGRAM
     Route: 048
     Dates: start: 20190222, end: 20190304
  13. OXYCONTIN [Concomitant]
     Active Substance: OXYCODONE HYDROCHLORIDE
     Dosage: 10 MILLIGRAM
     Route: 048
     Dates: start: 20190219, end: 20190227
  14. SODIUM BICARBONATE. [Concomitant]
     Active Substance: SODIUM BICARBONATE
     Dosage: 125?250 MILLILITER
     Dates: start: 20190223, end: 20190301
  15. SULPERAZON [Concomitant]
     Active Substance: CEFOPERAZONE SODIUM\SULBACTAM SODIUM
     Dosage: 3 GRAM
     Route: 042
     Dates: start: 20190208, end: 20190220
  16. MAGNESIUM ISOGLYCYRRHIZINATE [Concomitant]
     Active Substance: MAGNESIUM ISOGLYCYRRHIZINATE
     Dosage: 100 MILLIGRAM
     Route: 042
     Dates: start: 20190221, end: 20190226
  17. BLINATUMOMAB [Suspect]
     Active Substance: BLINATUMOMAB
     Indication: B PRECURSOR TYPE ACUTE LEUKAEMIA
     Dosage: 28 MICROGRAM, QD
     Route: 042
     Dates: start: 20190220, end: 20190227
  18. LORATADINE. [Concomitant]
     Active Substance: LORATADINE
     Dosage: 10 MILLIGRAM
     Route: 048
     Dates: start: 20190226, end: 20190302
  19. LIDOCAINE. [Concomitant]
     Active Substance: LIDOCAINE
     Dosage: 10 MILLILITER
     Route: 058
     Dates: start: 20190227, end: 20190227
  20. TRAMADOL HYDROCHLORIDE. [Concomitant]
     Active Substance: TRAMADOL HYDROCHLORIDE
     Dosage: 100 MILLIGRAM
     Route: 048
     Dates: start: 20190221, end: 20190221
  21. MANNITOL. [Concomitant]
     Active Substance: MANNITOL
     Dosage: 125 MILLILITER
     Route: 042
     Dates: start: 20190219, end: 20190219
  22. GLUCOSE AND SODIUM CHLORIDE [Concomitant]
     Active Substance: DEXTROSE\SODIUM CHLORIDE
     Dosage: 500 MILLILITER
     Route: 042
     Dates: start: 20190223, end: 20190303
  23. POSACONAZOLE [Concomitant]
     Active Substance: POSACONAZOLE
     Dosage: 5 MILLILITER
     Route: 048
     Dates: start: 20190209, end: 20190220
  24. GENTAMYCIN SULFATE [Concomitant]
     Active Substance: GENTAMICIN SULFATE
     Dosage: 80 MILLIGRAM
     Route: 048
     Dates: start: 20190222, end: 20190303
  25. FILGRASTIM [Concomitant]
     Active Substance: FILGRASTIM
     Dosage: 300 MICROGRAM
     Route: 058
     Dates: start: 20190221, end: 20190303
  26. FAT EMULSION NOS [Concomitant]
     Active Substance: EGG PHOSPHOLIPIDS\SAFFLOWER OIL\SOYBEAN OIL
     Dosage: 250 MILLILITER
     Route: 042
     Dates: start: 20190225, end: 20190301
  27. FENTANYL. [Concomitant]
     Active Substance: FENTANYL
     Dosage: 4.2 MILLIGRAM
     Route: 050
     Dates: start: 20190220, end: 20190304
  28. ALBUMIN PREPARED FROM HUMAN PLASMA [Concomitant]
     Dosage: 10 GRAM
     Route: 042
     Dates: start: 20190226, end: 20190303
  29. MEROPENEM. [Concomitant]
     Active Substance: MEROPENEM
     Indication: ANTI-INFECTIVE THERAPY
     Dosage: 1 GRAM
     Route: 042
     Dates: start: 20190228, end: 20190304
  30. TROPISETRON HYDROCHLORIDE [Concomitant]
     Active Substance: TROPISETRON HYDROCHLORIDE
     Dosage: 5 MILLIGRAM
     Route: 042
     Dates: start: 20190225, end: 20190225
  31. PIPERACILLIN SODIUM;SULBACTAM SODIUM [Concomitant]
     Active Substance: PIPERACILLIN SODIUM\SULBACTAM SODIUM
     Dosage: 3 GRAM
     Route: 042
     Dates: start: 20190222, end: 20190228
  32. ALLOPURINOL. [Concomitant]
     Active Substance: ALLOPURINOL
     Dosage: 0.25 GRAM
     Route: 048
     Dates: start: 20190223, end: 20190304

REACTIONS (1)
  - Cardiac failure acute [Fatal]

NARRATIVE: CASE EVENT DATE: 20190302
